FAERS Safety Report 25754468 (Version 1)
Quarter: 2025Q3

REPORT INFORMATION
  Report Type: Spontaneous
  Country: US (occurrence: US)
  Receive Date: 20250903
  Receipt Date: 20250903
  Transmission Date: 20251021
  Serious: No
  Sender: ROCHE
  Company Number: US-ROCHE-10000373947

PATIENT

DRUGS (1)
  1. HEMLIBRA [Suspect]
     Active Substance: EMICIZUMAB-KXWH
     Indication: Haemophilia A without inhibitors
     Dosage: 3MG/KG EVERY TWO WEEKS
     Route: 058

REACTIONS (2)
  - Inappropriate schedule of product administration [Unknown]
  - No adverse event [Unknown]

NARRATIVE: CASE EVENT DATE: 20250817
